FAERS Safety Report 13907263 (Version 1)
Quarter: 2017Q3

REPORT INFORMATION
  Report Type: Spontaneous
  Country: US (occurrence: US)
  Receive Date: 20170825
  Receipt Date: 20170825
  Transmission Date: 20171127
  Serious: No
  Sender: FDA-Public Use
  Company Number: US-ROCHE-1125367

PATIENT
  Sex: Male
  Weight: 32.3 kg

DRUGS (4)
  1. NUTROPIN [Suspect]
     Active Substance: SOMATROPIN
     Route: 058
     Dates: start: 199512, end: 200303
  2. NUTROPIN [Suspect]
     Active Substance: SOMATROPIN
     Indication: HYPOPITUITARISM
     Dosage: LAST INJECTION: 30/AUG
     Route: 058
     Dates: start: 19981217, end: 199903
  3. PROTROPIN [Concomitant]
     Active Substance: SOMATREM
     Route: 065
  4. NUTROPIN [Suspect]
     Active Substance: SOMATROPIN
     Route: 058
     Dates: start: 200303

REACTIONS (1)
  - Headache [Unknown]
